FAERS Safety Report 4720366-2 (Version None)
Quarter: 2005Q3

REPORT INFORMATION
  Report Type: 
  Country: None (occurrence: None)
  Receive Date: 20050719
  Receipt Date: 20050629
  Transmission Date: 20060218
  Serious: Yes (Other)
  Sender: FDA-Public Use
  Company Number: USA0506101750

PATIENT
  Age: 17 Year
  Sex: Female

DRUGS (3)
  1. CYMBALTA [Suspect]
     Indication: DEPRESSION
     Dosage: 30 MG
     Dates: start: 20050624
  2. WELLBUTRIN [Concomitant]
  3. PAXIL [Concomitant]

REACTIONS (1)
  - GRAND MAL CONVULSION [None]
